FAERS Safety Report 5598164-X (Version None)
Quarter: 2008Q1

REPORT INFORMATION
  Report Type: 
  Country: None (occurrence: None)
  Receive Date: 20080122
  Receipt Date: 20080114
  Transmission Date: 20080703
  Serious: Yes (Other)
  Sender: FDA-Public Use
  Company Number: PHNU2008DE00541

PATIENT
  Age: 80 Year
  Sex: Female

DRUGS (7)
  1. VOLTAREN [Suspect]
     Dosage: 1 DF, QD
     Route: 061
  2. FENISTIL (NCH) [Suspect]
     Dosage: 1-1/2-0 1-1-1
     Dates: start: 20031006
  3. FUROSEMIDE [Suspect]
     Dosage: 40 MG, TID
     Dates: start: 20031014
  4. RANITIDINE [Suspect]
     Dosage: 150 MG, BID
     Dates: start: 20031014
  5. PARACETAMOL [Suspect]
     Dosage: 500 MG, QD
  6. GELONIDA [Suspect]
     Dosage: 1 DF, QD
     Route: 048
  7. PHENYTOIN [Suspect]
     Dosage: 0.1 MG, QD

REACTIONS (1)
  - STEVENS-JOHNSON SYNDROME [None]
